FAERS Safety Report 9457527 (Version 1)
Quarter: 2013Q3

REPORT INFORMATION
  Report Type: Spontaneous
  Country: US (occurrence: None)
  Receive Date: 20130809
  Receipt Date: 20130809
  Transmission Date: 20140515
  Serious: Yes (Other)
  Sender: FDA-Public Use
  Company Number: FK201303014

PATIENT
  Age: 32 Year
  Sex: Male

DRUGS (5)
  1. ROSUVASTATIN (ROSUVASTATIN) [Concomitant]
  2. PIOGLITAZONE (PIOGLITAZONE) [Concomitant]
  3. MONTELUKAST [Concomitant]
  4. BUDESONIDE/FORMETEROL(BUDESONIDE W/FUMETEROL) [Concomitant]
  5. VANCOMYCIN [Suspect]
     Indication: MENINGITIS STAPHYLOCOCCAL
     Dosage: (NOT OTHERWISE SPECIFIED)
     Route: 042

REACTIONS (1)
  - Meningitis eosinophilic [None]
